FAERS Safety Report 22000960 (Version 1)
Quarter: 2023Q1

REPORT INFORMATION
  Report Type: Spontaneous
  Country: None (occurrence: US)
  Receive Date: 20230216
  Receipt Date: 20230216
  Transmission Date: 20230417
  Serious: Yes (Disabling, Other)
  Sender: FDA-Public Use
  Company Number: US-GLAXOSMITHKLINE-USCH2023GSK007072

PATIENT

DRUGS (2)
  1. ACETAMINOPHEN\ASPIRIN\CAFFEINE [Suspect]
     Active Substance: ACETAMINOPHEN\ASPIRIN\CAFFEINE
     Indication: Analgesic therapy
     Dosage: UNK
  2. ACETAMINOPHEN\ASPIRIN\CAFFEINE [Suspect]
     Active Substance: ACETAMINOPHEN\ASPIRIN\CAFFEINE
     Indication: Migraine

REACTIONS (18)
  - Dyspnoea [Unknown]
  - Panic attack [Unknown]
  - Withdrawal syndrome [Unknown]
  - Nausea [Unknown]
  - Dyspepsia [Unknown]
  - Pain [Unknown]
  - Hot flush [Unknown]
  - Fall [Unknown]
  - Dizziness [Unknown]
  - Rebound effect [Unknown]
  - Fear [Unknown]
  - Balance disorder [Unknown]
  - Sensory loss [Unknown]
  - Nervous system disorder [Unknown]
  - Respiratory disorder [Unknown]
  - Therapy non-responder [Unknown]
  - Product tampering [Unknown]
  - Product physical issue [Unknown]
